FAERS Safety Report 6877527-6 (Version None)
Quarter: 2010Q3

REPORT INFORMATION
  Report Type: 
  Country: None (occurrence: None)
  Receive Date: 20100727
  Receipt Date: 20100215
  Transmission Date: 20110219
  Serious: No
  Sender: FDA-Public Use
  Company Number: US-ABBOTT-10P-163-0627114-00

PATIENT
  Sex: Female
  Weight: 84.444 kg

DRUGS (10)
  1. SYNTHROID [Suspect]
     Indication: HYPOTHYROIDISM
     Dosage: BLUE TABLET
     Route: 048
     Dates: start: 20100118
  2. LEVOTHYROXINE SODIUM [Concomitant]
     Indication: HYPOTHYROIDISM
     Dosage: HIGHER DOSE THAN SYNTHROID
     Dates: end: 20100118
  3. LORATADINE [Concomitant]
     Indication: HYPERSENSITIVITY
     Route: 048
  4. ZOLAR ALLERGY INJECTIONS [Concomitant]
     Indication: SEASONAL ALLERGY
  5. ZOLAR ALLERGY INJECTIONS [Concomitant]
     Indication: ALLERGY TO ANIMAL
  6. ZOLAR ALLERGY INJECTIONS [Concomitant]
     Indication: SEASONAL ALLERGY
  7. OMEPRAZOLE [Concomitant]
     Indication: GASTROOESOPHAGEAL REFLUX DISEASE
  8. RANITIDINE [Concomitant]
     Indication: GASTROOESOPHAGEAL REFLUX DISEASE
  9. WELLBUTRIN [Concomitant]
     Indication: DEPRESSION
  10. ADDERALL 10 [Concomitant]
     Indication: PRODUCT USED FOR UNKNOWN INDICATION

REACTIONS (3)
  - CANDIDIASIS [None]
  - DYSGEUSIA [None]
  - TONGUE DISCOLOURATION [None]
